FAERS Safety Report 15876731 (Version 11)
Quarter: 2020Q1

REPORT INFORMATION
  Report Type: Report from Study
  Country: FR (occurrence: FR)
  Receive Date: 20190127
  Receipt Date: 20200211
  Transmission Date: 20200409
  Serious: Yes (Hospitalization, Other)
  Sender: FDA-Public Use
  Company Number: PHHY2019FR009327

PATIENT
  Age: 72 Year
  Sex: Male
  Weight: 96 kg

DRUGS (50)
  1. ADOPORT [Suspect]
     Active Substance: TACROLIMUS
     Dosage: 3 MG
     Route: 048
     Dates: start: 20190126, end: 20190214
  2. ADOPORT [Suspect]
     Active Substance: TACROLIMUS
     Dosage: 4 MG
     Route: 048
     Dates: start: 20190214, end: 20190314
  3. ADOPORT [Suspect]
     Active Substance: TACROLIMUS
     Dosage: UNK
     Route: 065
  4. URAPIDIL [Concomitant]
     Active Substance: URAPIDIL
     Indication: PRODUCT USED FOR UNKNOWN INDICATION
     Route: 065
  5. MPA [Concomitant]
     Indication: PRODUCT USED FOR UNKNOWN INDICATION
     Route: 065
  6. ADOPORT [Suspect]
     Active Substance: TACROLIMUS
     Dosage: 4 MG
     Route: 048
     Dates: start: 20181120, end: 20181120
  7. ADOPORT [Suspect]
     Active Substance: TACROLIMUS
     Dosage: 8 MG
     Route: 048
     Dates: start: 20181120, end: 20181122
  8. ADOPORT [Suspect]
     Active Substance: TACROLIMUS
     Dosage: 2 MG
     Route: 048
     Dates: start: 20181201, end: 20181202
  9. ADOPORT [Suspect]
     Active Substance: TACROLIMUS
     Dosage: 4 MG
     Route: 048
     Dates: start: 20181207, end: 20181208
  10. BACTRIM [Suspect]
     Active Substance: SULFAMETHOXAZOLE\TRIMETHOPRIM
     Indication: ANTIFUNGAL PROPHYLAXIS
     Dosage: 400 MG, UNK
     Route: 065
     Dates: start: 20181221, end: 20190131
  11. ADOPORT [Suspect]
     Active Substance: TACROLIMUS
     Dosage: 6 MG
     Route: 048
     Dates: start: 20181120, end: 20181120
  12. ADOPORT [Suspect]
     Active Substance: TACROLIMUS
     Dosage: 6 MG
     Route: 048
     Dates: start: 20181123, end: 20181126
  13. ADOPORT [Suspect]
     Active Substance: TACROLIMUS
     Dosage: 3.5 MG
     Route: 048
     Dates: start: 20181130, end: 20181201
  14. ADOPORT [Suspect]
     Active Substance: TACROLIMUS
     Dosage: 4.5 MG
     Route: 048
     Dates: start: 20181211, end: 20181212
  15. ADOPORT [Suspect]
     Active Substance: TACROLIMUS
     Dosage: 3.5 MG
     Route: 048
     Dates: start: 20190119, end: 20190126
  16. ADOPORT [Suspect]
     Active Substance: TACROLIMUS
     Dosage: 4 MG
     Route: 048
     Dates: start: 20190405, end: 20190613
  17. REPAGLINIDE. [Concomitant]
     Active Substance: REPAGLINIDE
     Indication: PRODUCT USED FOR UNKNOWN INDICATION
     Route: 065
  18. SULFAMETHOXAZOLE AND TRIMETHOPRIM [Concomitant]
     Active Substance: SULFAMETHOXAZOLE\TRIMETHOPRIM
     Indication: PRODUCT USED FOR UNKNOWN INDICATION
     Route: 065
  19. ADOPORT [Suspect]
     Active Substance: TACROLIMUS
     Dosage: 8 MG
     Route: 048
     Dates: start: 20181120, end: 20190206
  20. ADOPORT [Suspect]
     Active Substance: TACROLIMUS
     Dosage: 6 MG
     Route: 048
     Dates: start: 20181127, end: 20181128
  21. ADOPORT [Suspect]
     Active Substance: TACROLIMUS
     Dosage: 3 MG
     Route: 048
     Dates: start: 20181206, end: 20181207
  22. ADOPORT [Suspect]
     Active Substance: TACROLIMUS
     Dosage: 5.5 MG
     Route: 048
     Dates: start: 20181210, end: 20181211
  23. ADOPORT [Suspect]
     Active Substance: TACROLIMUS
     Dosage: 5 MG
     Route: 048
     Dates: start: 20181225, end: 20190105
  24. MYFORTIC [Suspect]
     Active Substance: MYCOPHENOLATE SODIUM
     Indication: PROPHYLAXIS AGAINST TRANSPLANT REJECTION
  25. FUROSEMIDE. [Concomitant]
     Active Substance: FUROSEMIDE
     Indication: PRODUCT USED FOR UNKNOWN INDICATION
     Route: 065
  26. CHOLECALCIFEROL [Concomitant]
     Active Substance: CHOLECALCIFEROL
     Indication: PRODUCT USED FOR UNKNOWN INDICATION
     Route: 065
  27. ADOPORT [Suspect]
     Active Substance: TACROLIMUS
     Dosage: 2.5 MG
     Route: 048
     Dates: start: 20181205, end: 20181206
  28. LATANOPROST / TIMOLOL [Concomitant]
     Indication: PRODUCT USED FOR UNKNOWN INDICATION
     Route: 065
  29. ADOPORT [Suspect]
     Active Substance: TACROLIMUS
     Indication: RENAL TRANSPLANT
     Dosage: 8 MG
     Route: 048
     Dates: start: 20181120, end: 20181123
  30. ADOPORT [Suspect]
     Active Substance: TACROLIMUS
     Dosage: 8 MG
     Route: 048
     Dates: start: 20181126, end: 20181127
  31. ADOPORT [Suspect]
     Active Substance: TACROLIMUS
     Dosage: 4.5 MG
     Route: 048
     Dates: start: 20181211
  32. ADOPORT [Suspect]
     Active Substance: TACROLIMUS
     Dosage: 1.5 MG
     Route: 048
     Dates: start: 20181204, end: 20181205
  33. CORTANCYL [Concomitant]
     Active Substance: PREDNISONE
     Indication: TRANSPLANT REJECTION
     Dosage: 10 MG, UNKNOWN
     Route: 065
     Dates: start: 20190206
  34. ZOPICLONE [Concomitant]
     Active Substance: ZOPICLONE
     Indication: PRODUCT USED FOR UNKNOWN INDICATION
     Route: 065
  35. ALLOPURINOL. [Concomitant]
     Active Substance: ALLOPURINOL
     Indication: PRODUCT USED FOR UNKNOWN INDICATION
     Route: 065
  36. ADOPORT [Suspect]
     Active Substance: TACROLIMUS
     Dosage: 4 MG
     Route: 048
     Dates: start: 20181128, end: 20181130
  37. ADOPORT [Suspect]
     Active Substance: TACROLIMUS
     Dosage: 6 MG
     Route: 048
     Dates: start: 20181208, end: 20181210
  38. ADOPORT [Suspect]
     Active Substance: TACROLIMUS
     Dosage: 4 MG
     Route: 048
     Dates: start: 20190105, end: 20190119
  39. ADOPORT [Suspect]
     Active Substance: TACROLIMUS
     Dosage: 3.5 MG
     Route: 048
     Dates: start: 20190613
  40. MYFORTIC [Suspect]
     Active Substance: MYCOPHENOLATE SODIUM
     Indication: ENZYME INDUCTION
     Dosage: 720 MG, UNK
     Route: 065
     Dates: start: 20181121, end: 20190131
  41. METHYLPREDNISOLONE. [Suspect]
     Active Substance: METHYLPREDNISOLONE
     Indication: ENZYME INDUCTION
     Dosage: 250 MG, UNK
     Route: 065
     Dates: start: 20181120, end: 20181121
  42. LANSOPRAZOLE. [Concomitant]
     Active Substance: LANSOPRAZOLE
     Indication: PRODUCT USED FOR UNKNOWN INDICATION
     Route: 065
  43. CETRIZINE [Concomitant]
     Active Substance: CETIRIZINE HYDROCHLORIDE
     Indication: PRODUCT USED FOR UNKNOWN INDICATION
     Route: 065
  44. ATORVASTATINE [Concomitant]
     Active Substance: ATORVASTATIN
     Indication: PRODUCT USED FOR UNKNOWN INDICATION
     Route: 065
  45. ADOPORT [Suspect]
     Active Substance: TACROLIMUS
     Dosage: 0.5 MG
     Route: 048
     Dates: start: 20181202, end: 20181203
  46. ADOPORT [Suspect]
     Active Substance: TACROLIMUS
     Dosage: 1 MG
     Route: 048
     Dates: start: 20181203, end: 20181204
  47. ADOPORT [Suspect]
     Active Substance: TACROLIMUS
     Dosage: 4 MG
     Route: 048
     Dates: start: 20181212, end: 20181225
  48. ADOPORT [Suspect]
     Active Substance: TACROLIMUS
     Dosage: 3 MG
     Route: 048
     Dates: start: 20190314, end: 20190405
  49. AMLODIPINE [Concomitant]
     Active Substance: AMLODIPINE BESYLATE
     Indication: PRODUCT USED FOR UNKNOWN INDICATION
     Route: 065
  50. MACROGOL [Concomitant]
     Active Substance: POLYETHYLENE GLYCOLS
     Indication: PRODUCT USED FOR UNKNOWN INDICATION
     Route: 065

REACTIONS (12)
  - Diabetes mellitus inadequate control [Recovered/Resolved]
  - Epididymitis [Recovered/Resolved]
  - Diabetes mellitus inadequate control [Recovered/Resolved]
  - Overdose [Recovered/Resolved]
  - Hyperkalaemia [Recovered/Resolved]
  - Cytomegalovirus infection [Recovered/Resolved]
  - Body height decreased [Unknown]
  - Cytomegalovirus infection [Recovered/Resolved]
  - Hypertension [Recovering/Resolving]
  - Leukopenia [Recovered/Resolved]
  - Anaemia [Recovered/Resolved]
  - Delayed graft function [Recovered/Resolved]

NARRATIVE: CASE EVENT DATE: 20181120
